FAERS Safety Report 25240158 (Version 1)
Quarter: 2025Q2

REPORT INFORMATION
  Report Type: Spontaneous
  Country: JP (occurrence: JP)
  Receive Date: 20250425
  Receipt Date: 20250425
  Transmission Date: 20250716
  Serious: Yes (Other)
  Sender: Harrow Health
  Company Number: JP-HARROW-HAR-2025-JP-00108

PATIENT
  Age: 81 Year
  Sex: Male

DRUGS (5)
  1. FLAREX [Suspect]
     Active Substance: FLUOROMETHOLONE ACETATE
     Indication: Conjunctivitis
  2. LEVOFLOXACIN [Suspect]
     Active Substance: LEVOFLOXACIN
     Indication: Conjunctivitis
  3. LEVOFLOXACIN [Suspect]
     Active Substance: LEVOFLOXACIN
  4. CEFMENOXIME HYDROCHLORIDE [Concomitant]
     Active Substance: CEFMENOXIME HYDROCHLORIDE
  5. LEVOFLOXACIN [Concomitant]
     Active Substance: LEVOFLOXACIN

REACTIONS (7)
  - Conjunctivitis bacterial [Recovered/Resolved]
  - Corneal oedema [Recovered/Resolved]
  - Corneal disorder [Recovered/Resolved]
  - Eye discharge [Recovered/Resolved]
  - Conjunctival hyperaemia [Recovered/Resolved]
  - Corneal striae [Recovered/Resolved]
  - Off label use [Recovered/Resolved]
